FAERS Safety Report 4325734-9 (Version None)
Quarter: 2004Q1

REPORT INFORMATION
  Report Type: 
  Country: None (occurrence: None)
  Receive Date: 20040324
  Receipt Date: 20040309
  Transmission Date: 20041129
  Serious: Yes (Life-Threatening, Hospitalization, Other)
  Sender: FDA-Public Use
  Company Number: USA040156787

PATIENT
  Age: 60 Year
  Sex: Male
  Weight: 100 kg

DRUGS (8)
  1. CIALIS [Suspect]
     Indication: ERECTILE DYSFUNCTION
     Dosage: 20 MG
     Dates: start: 20040111, end: 20040111
  2. MODURETIC 5-50 [Concomitant]
  3. COZAAR [Concomitant]
  4. KCL (POTASSIUM CHLORIDE) [Concomitant]
  5. LIPITOR [Concomitant]
  6. GLUCOSAMINE CHONDROITIN [Concomitant]
  7. NON-STEROIDAL ANTI-INFLAMMATORY [Concomitant]
  8. ALLERGY MEDICATION [Concomitant]

REACTIONS (10)
  - ACUTE PULMONARY OEDEMA [None]
  - ACUTE RESPIRATORY FAILURE [None]
  - BLOOD CREATINE PHOSPHOKINASE MB INCREASED [None]
  - BUNDLE BRANCH BLOCK LEFT [None]
  - CARDIAC FAILURE CONGESTIVE [None]
  - CHEST PAIN [None]
  - FEELING ABNORMAL [None]
  - HYPERTENSION [None]
  - VENTRICULAR DYSFUNCTION [None]
  - VENTRICULAR TACHYCARDIA [None]
